FAERS Safety Report 8088207-6 (Version None)
Quarter: 2012Q1

REPORT INFORMATION
  Report Type: 
  Country: None (occurrence: None)
  Receive Date: 20120131
  Receipt Date: 20120123
  Transmission Date: 20120608
  Serious: No
  Sender: FDA-Public Use
  Company Number: US-BIOGENIDEC-2012BI003013

PATIENT
  Sex: Female

DRUGS (17)
  1. TYSABRI [Suspect]
     Route: 042
     Dates: start: 20110718, end: 20111107
  2. ZOLOFT [Concomitant]
     Route: 048
  3. OMEPRAZOLE [Concomitant]
     Route: 048
  4. SIMVASTATIN [Concomitant]
     Route: 048
  5. LASIX [Concomitant]
     Route: 048
  6. MELOXICAM [Concomitant]
     Route: 048
  7. BACLOFEN [Concomitant]
     Route: 048
  8. BACLOFEN [Concomitant]
     Route: 048
  9. MIRALAX [Concomitant]
     Route: 048
  10. VICODIN ES [Concomitant]
     Route: 048
  11. TYSABRI [Suspect]
     Indication: MULTIPLE SCLEROSIS
     Route: 042
     Dates: start: 20070219, end: 20100315
  12. KLOR-CON [Concomitant]
  13. MAGNESIUM GLUCONATE [Concomitant]
     Route: 048
  14. LEVOTHYROXINE SODIUM [Concomitant]
     Route: 048
  15. ASPIRIN [Concomitant]
     Route: 048
  16. SANCTURA XR [Concomitant]
     Route: 048
  17. TIZANDINE HYDROCHLORIDE [Concomitant]
     Route: 048

REACTIONS (5)
  - ORTHOSTATIC HYPOTENSION [None]
  - URINARY TRACT DISORDER [None]
  - COGNITIVE DISORDER [None]
  - OEDEMA PERIPHERAL [None]
  - URINARY TRACT INFECTION [None]
